FAERS Safety Report 13300090 (Version 7)
Quarter: 2018Q4

REPORT INFORMATION
  Report Type: Spontaneous
  Country: JP (occurrence: JP)
  Receive Date: 20170306
  Receipt Date: 20181206
  Transmission Date: 20190204
  Serious: Yes (Other)
  Sender: FDA-Public Use
  Company Number: PHJP2017JP006682

PATIENT
  Sex: Male

DRUGS (6)
  1. TEGRETOL [Suspect]
     Active Substance: CARBAMAZEPINE
     Indication: TEMPORAL LOBE EPILEPSY
     Dosage: 5 DF, UNK
     Route: 048
  2. MYDRIN-P [Suspect]
     Active Substance: PHENYLEPHRINE HYDROCHLORIDE\TROPICAMIDE
     Indication: PUPILLARY DISORDER
     Dosage: UNK
     Route: 065
  3. MYSTAN [Concomitant]
     Active Substance: CLOBAZAM
     Indication: PRODUCT USED FOR UNKNOWN INDICATION
     Dosage: UNK
     Route: 065
  4. E KEPPRA [Concomitant]
     Active Substance: LEVETIRACETAM
     Indication: PRODUCT USED FOR UNKNOWN INDICATION
     Dosage: UNK
     Route: 065
  5. DEPAKENE [Concomitant]
     Active Substance: VALPROIC ACID
     Indication: PRODUCT USED FOR UNKNOWN INDICATION
     Dosage: UNK
     Route: 065
  6. GABAPEN [Concomitant]
     Active Substance: GABAPENTIN
     Indication: PRODUCT USED FOR UNKNOWN INDICATION
     Dosage: UNK
     Route: 065

REACTIONS (18)
  - Lenticular opacities [Unknown]
  - Diplopia [Unknown]
  - Drug eruption [Unknown]
  - Epilepsy [Unknown]
  - Cataract [Unknown]
  - Vision blurred [Unknown]
  - Visual acuity reduced [Unknown]
  - Grimacing [Unknown]
  - Hypoaesthesia [Unknown]
  - Tremor [Unknown]
  - Therapy non-responder [Unknown]
  - Deafness [Unknown]
  - Pupillary disorder [Unknown]
  - Retinal degeneration [Unknown]
  - Eye movement disorder [Unknown]
  - Nystagmus [Unknown]
  - Visual field defect [Unknown]
  - Dizziness [Unknown]

NARRATIVE: CASE EVENT DATE: 1998
